FAERS Safety Report 20092306 (Version 1)
Quarter: 2021Q4

REPORT INFORMATION
  Report Type: Spontaneous
  Country: US (occurrence: None)
  Receive Date: 20211119
  Receipt Date: 20211119
  Transmission Date: 20220303
  Serious: Yes (Other)
  Sender: FDA-Public Use
  Company Number: None

PATIENT
  Age: 77 Year
  Sex: Female
  Weight: 77.11 kg

DRUGS (8)
  1. LATANOPROST [Suspect]
     Active Substance: LATANOPROST
     Indication: Glaucoma
     Dosage: FREQUENCY : AT BEDTIME;?
     Route: 047
     Dates: start: 20210503, end: 20210615
  2. DILTIAZEM [Concomitant]
  3. ROSUVASTATIN [Concomitant]
     Active Substance: ROSUVASTATIN
  4. LOSARTAN [Concomitant]
     Active Substance: LOSARTAN
  5. CHLORTHALIDONE [Concomitant]
     Active Substance: CHLORTHALIDONE
  6. VITAMIN E [Concomitant]
     Active Substance: .ALPHA.-TOCOPHEROL
  7. VITAFUSION WOMEN^S MULTIVITAMIN [Concomitant]
  8. JUVENON NITRIC OXIDE BLOOD FLOW [Concomitant]

REACTIONS (3)
  - Photophobia [None]
  - Instillation site pain [None]
  - Eye pruritus [None]

NARRATIVE: CASE EVENT DATE: 20210715
